FAERS Safety Report 9650084 (Version 1)
Quarter: 2013Q4

REPORT INFORMATION
  Report Type: Spontaneous
  Country: US (occurrence: US)
  Receive Date: 20131028
  Receipt Date: 20131028
  Transmission Date: 20140711
  Serious: No
  Sender: FDA-Public Use
  Company Number: US-PURDUE-USA-2012-0096737

PATIENT
  Sex: Male

DRUGS (1)
  1. OXYCONTIN (NDA 22-272) [Suspect]
     Indication: DIABETIC NEUROPATHY
     Dosage: 40 MG, TID
     Route: 048

REACTIONS (5)
  - Headache [Unknown]
  - Constipation [Unknown]
  - Abdominal pain upper [Unknown]
  - Drug effect delayed [Unknown]
  - Product formulation issue [Unknown]
